FAERS Safety Report 13194640 (Version 1)
Quarter: 2017Q1

REPORT INFORMATION
  Report Type: Spontaneous
  Country: US (occurrence: US)
  Receive Date: 20170207
  Receipt Date: 20170207
  Transmission Date: 20170428
  Serious: No
  Sender: FDA-Public Use
  Company Number: US-JAZZ-2016-US-014190

PATIENT
  Sex: Male
  Weight: 145.13 kg

DRUGS (10)
  1. PRIALT [Suspect]
     Active Substance: ZICONOTIDE ACETATE
     Indication: PAIN
     Dosage: 0.287 ?G, QH
     Route: 037
     Dates: start: 20160525
  2. CLONIDINE. [Suspect]
     Active Substance: CLONIDINE
     Indication: SPINAL CORD INJURY
     Dosage: 51.7 ?G, QH
     Route: 037
     Dates: start: 20160719
  3. MORPHINE SULF [Suspect]
     Active Substance: MORPHINE SULFATE
     Indication: PAIN
     Dosage: 0.276 MG, QH
     Route: 037
     Dates: start: 20160525
  4. DILAUDID [Concomitant]
     Active Substance: HYDROMORPHONE HYDROCHLORIDE
     Dosage: 4 MG, Q6 HRS
     Route: 058
  5. CLONIDINE. [Suspect]
     Active Substance: CLONIDINE
     Indication: PAIN
     Dosage: 25.03 ?G, QH
     Route: 037
     Dates: start: 20160525
  6. DILAUDID [Suspect]
     Active Substance: HYDROMORPHONE HYDROCHLORIDE
     Indication: PAIN
     Dosage: 0.103 MG, QH
     Route: 037
     Dates: start: 20160525
  7. DILAUDID [Suspect]
     Active Substance: HYDROMORPHONE HYDROCHLORIDE
     Indication: SPINAL CORD INJURY
     Dosage: 0.213 MG, QH
     Route: 037
     Dates: start: 20160719
  8. MORPHINE SULF [Suspect]
     Active Substance: MORPHINE SULFATE
     Indication: SPINAL CORD INJURY
     Dosage: 0.569 MG, QH
     Route: 037
     Dates: start: 20160719
  9. METHADONE HCL [Concomitant]
     Active Substance: METHADONE HYDROCHLORIDE
     Dosage: 10 MG, Q6 HRS
     Route: 048
  10. PRIALT [Suspect]
     Active Substance: ZICONOTIDE ACETATE
     Indication: SPINAL CORD INJURY
     Dosage: 0.593 ?G, QH
     Route: 037
     Dates: start: 20160719

REACTIONS (5)
  - Anxiety [Recovering/Resolving]
  - Device issue [Unknown]
  - Pain [Recovering/Resolving]
  - Hyperhidrosis [Recovering/Resolving]
  - Flushing [Recovering/Resolving]
